FAERS Safety Report 9830364 (Version 1)
Quarter: 2014Q1

REPORT INFORMATION
  Report Type: Report from Study
  Country: FI (occurrence: FI)
  Receive Date: 20140120
  Receipt Date: 20140120
  Transmission Date: 20141002
  Serious: Yes (Other)
  Sender: FDA-Public Use
  Company Number: FI-BAXTER-2014BAX001528

PATIENT
  Sex: Male

DRUGS (2)
  1. KIOVIG 100 MG/ML INFUUSIONESTE, LIUOS, [Suspect]
     Indication: MULTIFOCAL MOTOR NEUROPATHY
     Route: 065
     Dates: start: 201305
  2. NANOGAM [Concomitant]
     Indication: MULTIFOCAL MOTOR NEUROPATHY
     Dosage: 35 G X 3
     Route: 042
     Dates: start: 201001, end: 201305

REACTIONS (1)
  - Congenital cystic kidney disease [Unknown]
